FAERS Safety Report 9832028 (Version 17)
Quarter: 2017Q2

REPORT INFORMATION
  Report Type: Report from Study
  Country: US (occurrence: US)
  Receive Date: 20140121
  Receipt Date: 20170403
  Transmission Date: 20170830
  Serious: Yes (Hospitalization, Other)
  Sender: FDA-Public Use
  Company Number: US-SA-2013SA128532

PATIENT
  Age: 62 Year
  Sex: Female
  Weight: 77 kg

DRUGS (15)
  1. AUBAGIO [Suspect]
     Active Substance: TERIFLUNOMIDE
     Indication: MULTIPLE SCLEROSIS
     Route: 048
     Dates: start: 20150108, end: 20160218
  2. DITROPAN [Concomitant]
     Active Substance: OXYBUTYNIN CHLORIDE
  3. AMPYRA [Concomitant]
     Active Substance: DALFAMPRIDINE
     Indication: GAIT DISTURBANCE
     Dosage: STRENGTH: 10 MG
     Route: 048
  4. BACLOFEN. [Concomitant]
     Active Substance: BACLOFEN
     Indication: MUSCLE SPASMS
     Dosage: FREQUENCY: EVERY EVENING?STRENGTH: 10 MG
     Route: 048
  5. VITAMIN B-COMPLEX WITH VITAMIN C [Concomitant]
     Dosage: DOSE: 1 IN THE EVENING
     Route: 065
  6. GABAPENTIN. [Concomitant]
     Active Substance: GABAPENTIN
     Indication: PAIN
  7. AUBAGIO [Suspect]
     Active Substance: TERIFLUNOMIDE
     Indication: MULTIPLE SCLEROSIS
     Route: 048
     Dates: start: 20140924, end: 20141205
  8. GABAPENTIN. [Concomitant]
     Active Substance: GABAPENTIN
     Indication: PAIN
     Dosage: STRENGTH: 600MG
     Route: 048
  9. OXYBUTYNIN [Concomitant]
     Active Substance: OXYBUTYNIN
     Indication: URINARY INCONTINENCE
     Dosage: STRENGTH: 15 MG
     Route: 048
  10. AUBAGIO [Suspect]
     Active Substance: TERIFLUNOMIDE
     Indication: MULTIPLE SCLEROSIS
     Route: 048
     Dates: start: 20131116, end: 20140701
  11. AUBAGIO [Suspect]
     Active Substance: TERIFLUNOMIDE
     Indication: MULTIPLE SCLEROSIS
     Route: 048
  12. VENLAFAXINE HYDROCHLORIDE. [Concomitant]
     Active Substance: VENLAFAXINE HYDROCHLORIDE
     Indication: HOT FLUSH
     Dosage: STRENGTH: 50 MG
     Route: 048
  13. CALCIUM/COLECALCIFEROL [Concomitant]
     Dosage: STRENGTH: CALCIUM 1200 MG + VITAMIN D3 1000 IU
     Route: 065
  14. VITAMIN E [Concomitant]
     Active Substance: .ALPHA.-TOCOPHEROL
     Route: 065
  15. EFFEXOR [Concomitant]
     Active Substance: VENLAFAXINE HYDROCHLORIDE

REACTIONS (19)
  - Mastitis [Recovering/Resolving]
  - Balance disorder [Recovered/Resolved]
  - Vomiting [Recovering/Resolving]
  - Tremor [Unknown]
  - Multiple sclerosis relapse [Unknown]
  - Pyrexia [Recovering/Resolving]
  - Micturition urgency [Unknown]
  - Fall [Recovered/Resolved]
  - Amnesia [Not Recovered/Not Resolved]
  - Upper limb fracture [Not Recovered/Not Resolved]
  - Sinusitis [Unknown]
  - Asthenia [Unknown]
  - Muscular weakness [Recovering/Resolving]
  - Diarrhoea [Unknown]
  - Body temperature increased [Unknown]
  - Lymphoedema [Not Recovered/Not Resolved]
  - Seroma [Not Recovered/Not Resolved]
  - Breast cancer [Recovering/Resolving]
  - Unevaluable event [Unknown]

NARRATIVE: CASE EVENT DATE: 201311
